FAERS Safety Report 23218124 (Version 2)
Quarter: 2023Q4

REPORT INFORMATION
  Report Type: Spontaneous
  Country: CO (occurrence: CO)
  Receive Date: 20231122
  Receipt Date: 20231220
  Transmission Date: 20240110
  Serious: Yes (Hospitalization)
  Sender: FDA-Public Use
  Company Number: CO-ORPHANEU-2023008097

PATIENT

DRUGS (2)
  1. ISTURISA [Suspect]
     Active Substance: OSILODROSTAT PHOSPHATE
     Indication: Pituitary-dependent Cushing^s syndrome
     Dosage: 3 TABLETS OF 5 MG EVERY 12 HOURS
     Route: 048
     Dates: start: 20230207
  2. EVEROLIMUS [Concomitant]
     Active Substance: EVEROLIMUS
     Indication: Product used for unknown indication
     Dosage: 5 MG, QD (TABLET)

REACTIONS (1)
  - Spinal fracture [Recovering/Resolving]

NARRATIVE: CASE EVENT DATE: 20231101
